FAERS Safety Report 9196999 (Version 1)
Quarter: 2013Q1

REPORT INFORMATION
  Report Type: Spontaneous
  Country: US (occurrence: US)
  Receive Date: 20130328
  Receipt Date: 20130328
  Transmission Date: 20140127
  Serious: Yes (Hospitalization)
  Sender: FDA-Public Use
  Company Number: US-JNJFOC-20130312104

PATIENT
  Age: 78 Year
  Sex: Female
  Weight: 98.6 kg

DRUGS (2)
  1. RIVAROXABAN [Suspect]
     Indication: KNEE ARTHROPLASTY
     Route: 048
     Dates: start: 20121023, end: 20121025
  2. RIVAROXABAN [Suspect]
     Indication: THROMBOSIS PROPHYLAXIS
     Route: 048
     Dates: start: 20121023, end: 20121025

REACTIONS (2)
  - Pulmonary embolism [Unknown]
  - Hypotension [Unknown]
